FAERS Safety Report 7867677-X (Version None)
Quarter: 2011Q4

REPORT INFORMATION
  Report Type: 
  Country: None (occurrence: None)
  Receive Date: 20111028
  Receipt Date: 20111025
  Transmission Date: 20120403
  Serious: Yes (Hospitalization, Disabling, Other)
  Sender: FDA-Public Use
  Company Number: PHEH2009US00892

PATIENT
  Sex: Male

DRUGS (23)
  1. CASODEX [Concomitant]
     Dosage: 50 MG, QD
     Route: 048
  2. PREDNISONE [Concomitant]
     Dosage: 20 MG, UNK
     Route: 048
  3. ADVAIR DISKUS 100/50 [Concomitant]
  4. ALBUTEROL [Concomitant]
     Dosage: 90 UG,
  5. ADVAIR DISKUS 100/50 [Concomitant]
  6. PERCOCET [Concomitant]
     Dosage: 5.325 MG, Q4H
     Route: 048
  7. SPIRIVA [Concomitant]
     Dosage: 18 MCG AS DIRECTED
  8. AZITHROMYCIN [Concomitant]
     Dosage: 250 MG,
     Route: 048
  9. PROAIR (FLUTICASONE PROPIONATE) [Concomitant]
     Dosage: 90 UG,
  10. INDERIDE-40/25 [Concomitant]
  11. ZESTRIL [Concomitant]
  12. SIMVASTATIN [Concomitant]
     Dosage: 20 MG, QD
     Route: 048
  13. LUPRON [Concomitant]
     Dates: start: 20080117
  14. DUONEB [Concomitant]
  15. TYLENOL-500 [Concomitant]
  16. ASPIRIN [Concomitant]
  17. PROPRANOLOL HCL W/HYDROCHLOROTHIAZIDE [Concomitant]
     Route: 048
  18. PREDNISONE [Concomitant]
     Dosage: 4 MG,
  19. CHLORHEXIDINE DENTAL ^ACO^ [Concomitant]
     Route: 049
  20. ZOMETA [Suspect]
     Indication: NEOPLASM MALIGNANT
     Dates: start: 20080201, end: 20080801
  21. PEN-VEE K [Concomitant]
     Dosage: 500 MG,
  22. LISINOPRIL [Concomitant]
     Dosage: 10 MG,
  23. DILTIAZEM HCL [Concomitant]
     Dosage: 180 MG CAPSULE  1 ORAL DAILY
     Route: 048

REACTIONS (68)
  - PAIN [None]
  - ANXIETY [None]
  - GASTROOESOPHAGEAL REFLUX DISEASE [None]
  - DYSPEPSIA [None]
  - SNORING [None]
  - SPINAL OSTEOARTHRITIS [None]
  - JOINT RANGE OF MOTION DECREASED [None]
  - LIGAMENT RUPTURE [None]
  - ASTHENIA [None]
  - MUSCULOSKELETAL DISCOMFORT [None]
  - BLADDER DYSFUNCTION [None]
  - POLLAKIURIA [None]
  - HIATUS HERNIA [None]
  - DYSPNOEA [None]
  - LIVER FUNCTION TEST ABNORMAL [None]
  - FALL [None]
  - PULMONARY FIBROSIS [None]
  - CANDIDIASIS [None]
  - ARRHYTHMIA [None]
  - OSTEONECROSIS OF JAW [None]
  - DYSPHAGIA [None]
  - INJURY [None]
  - ISCHAEMIC STROKE [None]
  - RENAL FAILURE [None]
  - CIRCADIAN RHYTHM SLEEP DISORDER [None]
  - EMOTIONAL DISTRESS [None]
  - VISION BLURRED [None]
  - PULMONARY VALVE INCOMPETENCE [None]
  - MITRAL VALVE INCOMPETENCE [None]
  - MENTAL DISORDER [None]
  - ANHEDONIA [None]
  - TOOTHACHE [None]
  - SYNOVIAL CYST [None]
  - JOINT INJURY [None]
  - ARTHROPATHY [None]
  - STRESS FRACTURE [None]
  - NASOPHARYNGITIS [None]
  - MUSCULAR WEAKNESS [None]
  - DEHYDRATION [None]
  - DECREASED APPETITE [None]
  - WEIGHT INCREASED [None]
  - LEFT ATRIAL DILATATION [None]
  - VENTRICULAR EXTRASYSTOLES [None]
  - SLEEP APNOEA SYNDROME [None]
  - PHYSICAL DISABILITY [None]
  - DISCOMFORT [None]
  - BACK PAIN [None]
  - CHRONIC OBSTRUCTIVE PULMONARY DISEASE [None]
  - PLEURAL CALCIFICATION [None]
  - MUSCULOSKELETAL PAIN [None]
  - LEFT VENTRICULAR HYPERTROPHY [None]
  - ATRIAL TACHYCARDIA [None]
  - TENDON RUPTURE [None]
  - PRODUCTIVE COUGH [None]
  - MUSCLE ATROPHY [None]
  - MOBILITY DECREASED [None]
  - SYNCOPE [None]
  - HYPERTENSION [None]
  - ATRIAL FIBRILLATION [None]
  - SCAR [None]
  - PAIN IN JAW [None]
  - QUALITY OF LIFE DECREASED [None]
  - NEOPLASM MALIGNANT [None]
  - BONE LESION [None]
  - ROTATOR CUFF SYNDROME [None]
  - ARTHRALGIA [None]
  - PULMONARY HYPERTENSION [None]
  - TRICUSPID VALVE INCOMPETENCE [None]
